FAERS Safety Report 17694527 (Version 3)
Quarter: 2020Q3

REPORT INFORMATION
  Report Type: Spontaneous
  Country: JP (occurrence: JP)
  Receive Date: 20200422
  Receipt Date: 20200709
  Transmission Date: 20201102
  Serious: Yes (Death, Hospitalization)
  Sender: FDA-Public Use
  Company Number: JP-ELI_LILLY_AND_COMPANY-JP202004006707AA

PATIENT
  Age: 72 Year
  Sex: Female
  Weight: 57 kg

DRUGS (9)
  1. VERZENIO [Suspect]
     Active Substance: ABEMACICLIB
     Indication: BREAST CANCER STAGE IV
     Dosage: 150 MG, BID
     Route: 048
     Dates: start: 20200122, end: 20200204
  2. METFORMIN HYDROCHLORIDE. [Concomitant]
     Active Substance: METFORMIN HYDROCHLORIDE
     Indication: DIABETES MELLITUS
     Dosage: 500 MG, BID
     Route: 048
     Dates: end: 20200407
  3. FASLODEX [Concomitant]
     Active Substance: FULVESTRANT
     Indication: BREAST CANCER STAGE IV
     Dosage: 500 MG, CYCLICAL
     Route: 030
     Dates: start: 20200122, end: 20200317
  4. FLUTIDE [FLUTICASONE PROPIONATE] [Concomitant]
     Indication: ASTHMA
     Dosage: 1 DOSAGE FORM, BID
     Route: 055
     Dates: end: 20200407
  5. RANMARK [Concomitant]
     Active Substance: DENOSUMAB
     Indication: METASTASES TO BONE
     Dosage: 120 MG, SINGLE
     Route: 058
     Dates: start: 20200317, end: 20200317
  6. CAMSHIA [Concomitant]
     Active Substance: AMLODIPINE BESYLATE\CANDESARTAN CILEXETIL
     Indication: HYPERTENSION
     Dosage: 1 DOSAGE FORM, DAILY
     Route: 048
     Dates: end: 20200407
  7. PRAVASTATIN SODIUM. [Concomitant]
     Active Substance: PRAVASTATIN SODIUM
     Indication: LIPIDS ABNORMAL
     Dosage: 10 MG, DAILY
     Route: 048
     Dates: end: 20200407
  8. GLIMEPIRIDE. [Concomitant]
     Active Substance: GLIMEPIRIDE
     Indication: DIABETES MELLITUS
     Dosage: 0.5 MG, DAILY
     Route: 048
     Dates: end: 20200407
  9. VERZENIO [Suspect]
     Active Substance: ABEMACICLIB
     Dosage: 100 MG, BID
     Route: 048
     Dates: start: 20200218, end: 20200407

REACTIONS (3)
  - Platelet count decreased [Unknown]
  - Hepatic failure [Fatal]
  - Back pain [Unknown]

NARRATIVE: CASE EVENT DATE: 20200204
